FAERS Safety Report 8918580 (Version 2)
Quarter: 2013Q4

REPORT INFORMATION
  Report Type: Spontaneous
  Country: US (occurrence: US)
  Receive Date: 20121120
  Receipt Date: 20131008
  Transmission Date: 20140711
  Serious: No
  Sender: FDA-Public Use
  Company Number: US-ASTRAZENECA-2012SE22363

PATIENT
  Age: 66 Year
  Sex: Female
  Weight: 81.6 kg

DRUGS (19)
  1. NEXIUM [Suspect]
     Indication: DIVERTICULUM
     Route: 048
     Dates: start: 2007, end: 20131001
  2. NEXIUM [Suspect]
     Indication: GASTRIC DISORDER
     Route: 048
     Dates: start: 2007, end: 20131001
  3. NEXIUM [Suspect]
     Indication: GASTROOESOPHAGEAL REFLUX DISEASE
     Route: 048
     Dates: start: 2007, end: 20131001
  4. SEROQUEL [Suspect]
     Indication: SLEEP DISORDER THERAPY
     Route: 048
  5. SEROQUEL [Suspect]
     Indication: DEPRESSION
     Route: 048
  6. SEROQUEL [Suspect]
     Indication: ANXIETY
     Route: 048
  7. SEROQUEL [Suspect]
     Indication: SLEEP DISORDER THERAPY
     Route: 048
     Dates: start: 1997
  8. SEROQUEL [Suspect]
     Indication: DEPRESSION
     Route: 048
     Dates: start: 1997
  9. SEROQUEL [Suspect]
     Indication: ANXIETY
     Route: 048
     Dates: start: 1997
  10. LISINOPRIL [Suspect]
     Indication: BLOOD PRESSURE ABNORMAL
     Route: 048
  11. EFFEXOR XR [Concomitant]
     Indication: DEPRESSION
     Dates: start: 1997
  12. METFORMIN [Concomitant]
     Indication: DIABETES MELLITUS
  13. TRAMADOL [Concomitant]
     Indication: PAIN
  14. CLONAZEPAM [Concomitant]
     Indication: MENTAL DISORDER
     Dates: start: 1997
  15. CLONAZEPAM [Concomitant]
     Indication: ANXIETY
     Dates: start: 1997
  16. TENOCLOR [Concomitant]
     Indication: BLOOD PRESSURE ABNORMAL
  17. KRILL [Concomitant]
     Indication: BLOOD PRESSURE ABNORMAL
  18. KRILL [Concomitant]
     Indication: DIABETES MELLITUS
  19. TYLENOL [Concomitant]
     Indication: NECK PAIN

REACTIONS (9)
  - Spinal osteoarthritis [Unknown]
  - Neuropathy peripheral [Unknown]
  - Adverse event [Unknown]
  - Abdominal discomfort [Unknown]
  - Nerve injury [Unknown]
  - Road traffic accident [Unknown]
  - Local swelling [Unknown]
  - Drug dose omission [Unknown]
  - Drug ineffective [Unknown]
